FAERS Safety Report 7954182-5 (Version None)
Quarter: 2011Q4

REPORT INFORMATION
  Report Type: 
  Country: None (occurrence: None)
  Receive Date: 20111202
  Receipt Date: 20111130
  Transmission Date: 20120403
  Serious: No
  Sender: FDA-Public Use
  Company Number: US-B.I. PHARMACEUTICALS,INC./RIDGEFIELD-2011-BP-27143BP

PATIENT
  Sex: Female

DRUGS (21)
  1. RESTASIS [Concomitant]
     Indication: DRY EYE
     Dosage: 0.8 ML
  2. VITAMIN A [Concomitant]
     Indication: SUPPLEMENTATION THERAPY
     Dosage: 16000 U
     Route: 048
  3. FLAXSEED [Concomitant]
     Indication: DRY EYE
     Route: 048
  4. ASPIRIN [Concomitant]
     Indication: ATRIAL FIBRILLATION
     Dosage: 81 MG
     Route: 048
  5. PREDNISONE TAB [Concomitant]
     Indication: OSTEOARTHRITIS
  6. WARFARIN SODIUM [Concomitant]
     Indication: ATRIAL FIBRILLATION
     Dosage: 2 MG
     Route: 048
  7. LIPITOR [Concomitant]
     Indication: BLOOD CHOLESTEROL INCREASED
     Dosage: 10 MG
     Route: 048
  8. PREMARIN [Concomitant]
     Indication: MENOPAUSE
     Dosage: 0.625 MG
     Route: 048
  9. OSCAL [Concomitant]
     Indication: SUPPLEMENTATION THERAPY
     Dosage: 500 MG
     Route: 048
  10. DIGOXIN [Concomitant]
     Indication: ATRIAL FIBRILLATION
     Dosage: 0.25 MG
     Route: 048
  11. RANITIDINE [Concomitant]
     Indication: GASTROOESOPHAGEAL REFLUX DISEASE
     Dosage: 300 MG
     Route: 048
  12. CELEBREX [Concomitant]
     Indication: RHEUMATOID ARTHRITIS
     Dosage: 200 MG
     Route: 048
  13. PREDNISONE TAB [Concomitant]
     Indication: RHEUMATOID ARTHRITIS
     Dosage: 7.5 MG
     Route: 048
  14. HYDROXYCHLOR [Concomitant]
     Indication: OSTEOARTHRITIS
  15. VITAMIN D [Concomitant]
     Indication: SUPPLEMENTATION THERAPY
     Dosage: 1000 U
     Route: 048
  16. CELEBREX [Concomitant]
     Indication: OSTEOARTHRITIS
  17. GELATIN CAPSULE [Concomitant]
     Indication: SUPPLEMENTATION THERAPY
     Dosage: 1300 MG
     Route: 048
  18. SPIRIVA [Suspect]
     Indication: CHRONIC OBSTRUCTIVE PULMONARY DISEASE
     Dosage: 18 MCG
     Route: 055
     Dates: start: 20080101
  19. SEREVENT [Concomitant]
     Indication: CHRONIC OBSTRUCTIVE PULMONARY DISEASE
     Dosage: 2 PUF
     Route: 055
  20. HYDROXYCHLOR [Concomitant]
     Indication: RHEUMATOID ARTHRITIS
     Dosage: 400 MG
     Route: 048
  21. FIBERCON [Concomitant]
     Indication: SUPPLEMENTATION THERAPY
     Route: 048

REACTIONS (4)
  - LARYNGITIS [None]
  - FUNGAL INFECTION [None]
  - VOCAL CORD THICKENING [None]
  - VOCAL CORD DISORDER [None]
